FAERS Safety Report 10796602 (Version 13)
Quarter: 2016Q4

REPORT INFORMATION
  Report Type: Report from Study
  Country: MX (occurrence: MX)
  Receive Date: 20150216
  Receipt Date: 20161026
  Transmission Date: 20170206
  Serious: Yes (Life-Threatening, Disabling, Other)
  Sender: FDA-Public Use
  Company Number: MX-ROCHE-1534674

PATIENT
  Age: 50 Year
  Sex: Female
  Weight: 76 kg

DRUGS (17)
  1. ROACTEMRA [Suspect]
     Active Substance: TOCILIZUMAB
     Indication: RHEUMATOID ARTHRITIS
     Dosage: EACH 4 WEEKS/CURRENT THERAPY?LAST ADMINISTRATION OF TOCILIZUMAB : 13/OCT/2016
     Route: 042
     Dates: start: 201410
  2. KIKUZUBAM [Suspect]
     Active Substance: RITUXIMAB
     Route: 042
     Dates: start: 2010
  3. TAFITRAM [Concomitant]
     Indication: ARTHRALGIA
     Dosage: AT NIGHT
     Route: 048
     Dates: start: 201408
  4. MABTHERA [Suspect]
     Active Substance: RITUXIMAB
     Dosage: PRIOR TO PRIOR THERAPY
     Route: 042
     Dates: start: 2012, end: 2014
  5. METAMIZOL [Concomitant]
     Active Substance: METAMIZOLE SODIUM
     Dosage: IN CASE OF PAIN.
     Route: 048
  6. MABTHERA [Suspect]
     Active Substance: RITUXIMAB
     Indication: RHEUMATOID ARTHRITIS
     Dosage: PRIOR TO PRIOR THERAPY
     Route: 042
     Dates: start: 2013, end: 2013
  7. KIKUZUBAM [Suspect]
     Active Substance: RITUXIMAB
     Indication: RHEUMATOID ARTHRITIS
     Dosage: UNIQUE DOSE/ PRIOR THERAPY
     Route: 042
     Dates: start: 2013, end: 2013
  8. PROPAFENONE. [Concomitant]
     Active Substance: PROPAFENONE
     Indication: PARKINSONISM
  9. MABTHERA [Suspect]
     Active Substance: RITUXIMAB
     Dosage: PRIOR TO PRIOR THERAPY
     Route: 042
     Dates: start: 2010
  10. CLONAZEPAM. [Suspect]
     Active Substance: CLONAZEPAM
     Indication: EMOTIONAL DISORDER
     Route: 065
     Dates: start: 2010, end: 201606
  11. CORTISONE [Concomitant]
     Active Substance: CORTISONE\HYDROCORTISONE
  12. TRIMETHOPRIM. [Suspect]
     Active Substance: TRIMETHOPRIM
     Indication: PRODUCT USED FOR UNKNOWN INDICATION
     Route: 065
  13. ACETAMINOPHEN. [Concomitant]
     Active Substance: ACETAMINOPHEN
     Indication: ARTHRALGIA
     Dosage: AT NIGHT?IN CASE OF PAIN
     Route: 048
     Dates: end: 201606
  14. BUTILHIOSCINA [Concomitant]
     Dosage: IN CASE OF PAIN
     Route: 065
  15. TRAMADOL. [Concomitant]
     Active Substance: TRAMADOL
     Indication: ARTHRALGIA
     Dosage: AT NIGHT?IN CASE OF PAIN
     Route: 048
     Dates: start: 201606
  16. LEVOTHYROXINE. [Concomitant]
     Active Substance: LEVOTHYROXINE
     Route: 048
  17. PROPAFENONE. [Concomitant]
     Active Substance: PROPAFENONE
     Indication: ARRHYTHMIA
     Route: 048
     Dates: start: 2012

REACTIONS (55)
  - Anaphylactic shock [Recovered/Resolved]
  - Cholelithiasis [Not Recovered/Not Resolved]
  - Palatal disorder [Unknown]
  - Malaise [Recovering/Resolving]
  - Gastritis [Recovering/Resolving]
  - Rash [Recovered/Resolved]
  - Renal pain [Recovered/Resolved]
  - Micturition urgency [Recovered/Resolved]
  - Gastrooesophageal reflux disease [Not Recovered/Not Resolved]
  - Gait disturbance [Unknown]
  - Vaginal haemorrhage [Not Recovered/Not Resolved]
  - Burning sensation [Recovered/Resolved]
  - Food craving [Unknown]
  - Dyspepsia [Unknown]
  - Abdominal pain upper [Unknown]
  - Fatigue [Not Recovered/Not Resolved]
  - Joint contracture [Not Recovered/Not Resolved]
  - Pain [Recovering/Resolving]
  - Burning sensation [Recovering/Resolving]
  - Blood pressure decreased [Not Recovered/Not Resolved]
  - Cough [Not Recovered/Not Resolved]
  - Medication error [Unknown]
  - Throat lesion [Recovering/Resolving]
  - Stomatitis necrotising [Recovering/Resolving]
  - Dizziness [Unknown]
  - Blood pressure decreased [Recovered/Resolved]
  - Pain [Unknown]
  - Sjogren^s syndrome [Recovering/Resolving]
  - Emotional disorder [Not Recovered/Not Resolved]
  - Eye inflammation [Recovering/Resolving]
  - Hypercholesterolaemia [Unknown]
  - Headache [Not Recovered/Not Resolved]
  - Leukopenia [Not Recovered/Not Resolved]
  - Thirst [Unknown]
  - Nasopharyngitis [Unknown]
  - Malaise [Unknown]
  - Blood pressure increased [Recovered/Resolved]
  - Off label use [Unknown]
  - Hypothyroidism [Not Recovered/Not Resolved]
  - Somnolence [Not Recovered/Not Resolved]
  - Anaemia [Unknown]
  - Decreased appetite [Unknown]
  - Hyperchlorhydria [Unknown]
  - Blood pressure abnormal [Recovering/Resolving]
  - Vomiting [Recovering/Resolving]
  - Amnesia [Recovering/Resolving]
  - Drug ineffective [Unknown]
  - Weight increased [Recovering/Resolving]
  - Hiatus hernia [Not Recovered/Not Resolved]
  - Somnolence [Recovered/Resolved]
  - Wrong technique in product usage process [Unknown]
  - Back pain [Recovered/Resolved]
  - Lactose intolerance [Unknown]
  - Barrett^s oesophagus [Not Recovered/Not Resolved]
  - Weight decreased [Recovering/Resolving]

NARRATIVE: CASE EVENT DATE: 2010
